FAERS Safety Report 23184245 (Version 1)
Quarter: 2023Q4

REPORT INFORMATION
  Report Type: Other
  Country: None (occurrence: JP)
  Receive Date: 20231115
  Receipt Date: 20231115
  Transmission Date: 20240109
  Serious: Yes (Other)
  Sender: FDA-Public Use
  Company Number: JP-Avondale Pharmaceuticals, LLC-2148292

PATIENT
  Sex: Female

DRUGS (2)
  1. POTASSIUM IODIDE [Suspect]
     Active Substance: POTASSIUM IODIDE
     Indication: Graves^ disease
     Route: 065
  2. PROPYLTHIOURACIL [Suspect]
     Active Substance: PROPYLTHIOURACIL
     Route: 065

REACTIONS (4)
  - Maternal exposure during pregnancy [Unknown]
  - Foetal disorder [Unknown]
  - Goitre [Unknown]
  - Hypothyroidism [Unknown]
